FAERS Safety Report 19369642 (Version 7)
Quarter: 2022Q1

REPORT INFORMATION
  Report Type: Spontaneous
  Country: JP (occurrence: JP)
  Receive Date: 20210602
  Receipt Date: 20220223
  Transmission Date: 20220423
  Serious: Yes (Hospitalization, Other)
  Sender: FDA-Public Use
  Company Number: JP-JNJFOC-20210551908

PATIENT
  Age: 80 Year
  Sex: Male
  Weight: 61 kg

DRUGS (4)
  1. ERLEADA [Suspect]
     Active Substance: APALUTAMIDE
     Indication: Prostate cancer metastatic
     Route: 048
     Dates: start: 20210408, end: 20210520
  2. ZOLADEX [Suspect]
     Active Substance: GOSERELIN ACETATE
     Dosage: DOSE UNKNOWN
     Route: 065
     Dates: end: 202105
  3. SILODOSIN [Suspect]
     Active Substance: SILODOSIN
     Dosage: DOSE UNKNOWN
     Route: 048
     Dates: end: 202105
  4. CEFCAPENE PIVOXIL HYDROCHLORIDE HYDRATE [Suspect]
     Active Substance: CEFCAPENE PIVOXIL HYDROCHLORIDE HYDRATE
     Indication: Oropharyngeal pain
     Dosage: DOSE UNKNOWN
     Route: 065
     Dates: start: 20210515, end: 20210520

REACTIONS (5)
  - Drug reaction with eosinophilia and systemic symptoms [Recovered/Resolved]
  - Malaise [Unknown]
  - Cytomegalovirus enterocolitis [Recovered/Resolved]
  - Vanishing bile duct syndrome [Recovered/Resolved]
  - Oropharyngeal pain [Unknown]

NARRATIVE: CASE EVENT DATE: 20210515
